FAERS Safety Report 19146050 (Version 3)
Quarter: 2021Q2

REPORT INFORMATION
  Report Type: Spontaneous
  Country: NL (occurrence: NL)
  Receive Date: 20210416
  Receipt Date: 20210525
  Transmission Date: 20210717
  Serious: Yes (Hospitalization)
  Sender: FDA-Public Use
  Company Number: NL-CELGENEUS-NLD-20210305731

PATIENT
  Age: 63 Year
  Sex: Female

DRUGS (8)
  1. FLUOXETINE [Concomitant]
     Active Substance: FLUOXETINE HYDROCHLORIDE
     Indication: INFUSION RELATED REACTION
     Route: 065
     Dates: start: 20210406
  2. CARFILZOMIB [Suspect]
     Active Substance: CARFILZOMIB
     Indication: PLASMA CELL MYELOMA
     Dosage: 110 AND 39 MG ACCORDING TO PROTOCOL
     Route: 065
     Dates: start: 20210304, end: 20210318
  3. OXAZEPAM. [Concomitant]
     Active Substance: OXAZEPAM
     Indication: DEPRESSION
     Route: 065
     Dates: start: 20210220, end: 20210420
  4. ISATUXIMAB [Suspect]
     Active Substance: ISATUXIMAB
     Indication: PLASMA CELL MYELOMA
     Dosage: 100 MG / 5 ML
     Route: 065
     Dates: start: 20210304
  5. LORAZEPAM. [Concomitant]
     Active Substance: LORAZEPAM
     Indication: INFUSION RELATED REACTION
     Route: 065
     Dates: start: 20210420
  6. OXAZEPAM. [Concomitant]
     Active Substance: OXAZEPAM
     Indication: SLEEP APNOEA SYNDROME
  7. ISATUXIMAB [Suspect]
     Active Substance: ISATUXIMAB
     Dosage: 110 AND 39 MG ACCORDING TO PROTOCOL.?500 MG / 25 ML
     Route: 065
     Dates: start: 20210314, end: 20210318
  8. LENALIDOMIDE [Suspect]
     Active Substance: LENALIDOMIDE
     Indication: PLASMA CELL MYELOMA
     Dosage: 25 MILLIGRAM
     Route: 048
     Dates: start: 20210304, end: 20210318

REACTIONS (1)
  - Infusion related reaction [Recovered/Resolved]

NARRATIVE: CASE EVENT DATE: 20210318
